FAERS Safety Report 5649644-X (Version None)
Quarter: 2008Q1

REPORT INFORMATION
  Report Type: 
  Country: None (occurrence: None)
  Receive Date: 20080304
  Receipt Date: 20080212
  Transmission Date: 20080703
  Serious: Yes (Other)
  Sender: FDA-Public Use
  Company Number: US-PFIZER INC-2008014137

PATIENT
  Sex: Female
  Weight: 106.6 kg

DRUGS (1)
  1. CHANTIX [Suspect]
     Indication: SMOKING CESSATION THERAPY
     Dates: start: 20080102, end: 20080101

REACTIONS (4)
  - CONSTIPATION [None]
  - HYPOAESTHESIA [None]
  - PELVIC DISCOMFORT [None]
  - URINARY RETENTION [None]
